FAERS Safety Report 7747022-0 (Version None)
Quarter: 2011Q3

REPORT INFORMATION
  Report Type: 
  Country: None (occurrence: None)
  Receive Date: 20110913
  Receipt Date: 20110907
  Transmission Date: 20111222
  Serious: Yes (Hospitalization)
  Sender: FDA-Public Use
  Company Number: PHHO2008DE00723

PATIENT
  Sex: Male

DRUGS (3)
  1. MYFORTIC [Suspect]
     Dosage: 360 MG, BID
     Dates: start: 20071224, end: 20080104
  2. NO TREATMENT RECEIVED [Suspect]
     Dosage: NO TREATMENT
  3. MYFORTIC [Suspect]
     Indication: RENAL TRANSPLANT
     Dosage: 720 MG, BID
     Route: 048
     Dates: end: 20071223

REACTIONS (2)
  - ABDOMINAL PAIN [None]
  - WEIGHT DECREASED [None]
